FAERS Safety Report 16343260 (Version 1)
Quarter: 2019Q2

REPORT INFORMATION
  Report Type: Report from Study
  Country: FR (occurrence: FR)
  Receive Date: 20190522
  Receipt Date: 20190522
  Transmission Date: 20190711
  Serious: Yes (Other)
  Sender: FDA-Public Use
  Company Number: FR-JNJFOC-20190513363

PATIENT

DRUGS (3)
  1. IBRUTINIB [Suspect]
     Active Substance: IBRUTINIB
     Indication: MANTLE CELL LYMPHOMA
     Dosage: 140 MG TO 560 MG
     Route: 048
  2. IBRUTINIB [Suspect]
     Active Substance: IBRUTINIB
     Indication: CHRONIC LYMPHOCYTIC LEUKAEMIA
     Dosage: 140 MG TO 560 MG
     Route: 048
  3. IBRUTINIB [Suspect]
     Active Substance: IBRUTINIB
     Indication: WALDENSTROM^S MACROGLOBULINAEMIA
     Dosage: 140 MG TO 560 MG
     Route: 048

REACTIONS (11)
  - Rash [Unknown]
  - Atrial fibrillation [Unknown]
  - Haemorrhage [Unknown]
  - Thrombocytopenia [Unknown]
  - Urinary retention [Unknown]
  - Muscle spasms [Unknown]
  - Arthralgia [Unknown]
  - Neutropenia [Unknown]
  - Haematuria [Unknown]
  - Anaemia [Unknown]
  - Hypertension [Unknown]
